FAERS Safety Report 17017179 (Version 1)
Quarter: 2019Q4

REPORT INFORMATION
  Report Type: Spontaneous
  Country: GB (occurrence: GB)
  Receive Date: 20191111
  Receipt Date: 20191111
  Transmission Date: 20200122
  Serious: Yes (Disabling)
  Sender: FDA-Public Use
  Company Number: GB-BAYER-2019-197635

PATIENT
  Age: 83 Year
  Sex: Male

DRUGS (1)
  1. RADIUM-223 DICHLORIDE [Suspect]
     Active Substance: RADIUM RA-223 DICHLORIDE
     Indication: PROSTATE CANCER METASTATIC
     Dates: start: 20150315, end: 20150715

REACTIONS (2)
  - Metastases to bone [Unknown]
  - Metastases to soft tissue [Unknown]
